FAERS Safety Report 22142261 (Version 1)
Quarter: 2023Q1

REPORT INFORMATION
  Report Type: Report from Study
  Country: CA (occurrence: CA)
  Receive Date: 20230327
  Receipt Date: 20230327
  Transmission Date: 20230418
  Serious: Yes (Other)
  Sender: FDA-Public Use
  Company Number: CA-PFIZER INC-202300124823

PATIENT
  Age: 54 Year
  Sex: Female

DRUGS (11)
  1. METHOTREXATE SODIUM [Suspect]
     Active Substance: METHOTREXATE SODIUM
     Route: 065
  2. ETANERCEPT [Suspect]
     Active Substance: ETANERCEPT
     Indication: Rheumatoid arthritis
     Dosage: 50 MG, WEEKLY
     Route: 065
  3. ETANERCEPT [Suspect]
     Active Substance: ETANERCEPT
     Indication: Rheumatoid arthritis
     Route: 065
  4. ASPIRIN [Concomitant]
     Active Substance: ASPIRIN
     Dosage: 81 MG, 1X/DAY
     Route: 065
  5. ASPIRIN [Concomitant]
     Active Substance: ASPIRIN
     Dosage: 81 MG
     Route: 065
  6. CANDESARTAN [Concomitant]
     Active Substance: CANDESARTAN
     Dosage: 8 MG, 1X/DAY
     Route: 065
  7. DEXILANT [Concomitant]
     Active Substance: DEXLANSOPRAZOLE
     Dosage: 60 MG, 1X/DAY
     Route: 065
  8. HYDROXYCHLOROQUINE [Concomitant]
     Active Substance: HYDROXYCHLOROQUINE
     Dosage: 200 MG, 1X/DAY
     Route: 065
  9. HYDROXYCHLOROQUINE SULFATE [Concomitant]
     Active Substance: HYDROXYCHLOROQUINE SULFATE
     Route: 065
  10. INDOMETHACIN [Concomitant]
     Active Substance: INDOMETHACIN
     Route: 065
  11. ROSUVASTATIN [Concomitant]
     Active Substance: ROSUVASTATIN
     Dosage: 10 MG, 1X/DAY
     Route: 065

REACTIONS (39)
  - Arthralgia [Not Recovered/Not Resolved]
  - Asthenia [Not Recovered/Not Resolved]
  - Autoimmune disorder [Not Recovered/Not Resolved]
  - Blister [Not Recovered/Not Resolved]
  - Blood iron decreased [Not Recovered/Not Resolved]
  - Coccydynia [Not Recovered/Not Resolved]
  - Drug ineffective [Not Recovered/Not Resolved]
  - Drug intolerance [Not Recovered/Not Resolved]
  - Erythema [Not Recovered/Not Resolved]
  - Feeling abnormal [Not Recovered/Not Resolved]
  - Feeling hot [Not Recovered/Not Resolved]
  - Fibromyalgia [Not Recovered/Not Resolved]
  - Haemoptysis [Not Recovered/Not Resolved]
  - Herpes zoster [Not Recovered/Not Resolved]
  - Ill-defined disorder [Not Recovered/Not Resolved]
  - Infection [Not Recovered/Not Resolved]
  - Insomnia [Not Recovered/Not Resolved]
  - Loss of personal independence in daily activities [Not Recovered/Not Resolved]
  - Lower respiratory tract infection [Not Recovered/Not Resolved]
  - Menopause [Not Recovered/Not Resolved]
  - Neck pain [Not Recovered/Not Resolved]
  - Ocular hyperaemia [Not Recovered/Not Resolved]
  - Pain [Not Recovered/Not Resolved]
  - Papule [Not Recovered/Not Resolved]
  - Paraesthesia [Not Recovered/Not Resolved]
  - Peripheral swelling [Not Recovered/Not Resolved]
  - Pharyngitis [Not Recovered/Not Resolved]
  - Pneumonia [Not Recovered/Not Resolved]
  - Productive cough [Not Recovered/Not Resolved]
  - Pruritus [Not Recovered/Not Resolved]
  - Pyrexia [Not Recovered/Not Resolved]
  - Rash [Not Recovered/Not Resolved]
  - Rheumatoid arthritis [Not Recovered/Not Resolved]
  - Skin infection [Not Recovered/Not Resolved]
  - Sputum discoloured [Not Recovered/Not Resolved]
  - Swelling [Not Recovered/Not Resolved]
  - Vasculitis [Not Recovered/Not Resolved]
  - Weight increased [Not Recovered/Not Resolved]
  - White blood cell count abnormal [Not Recovered/Not Resolved]
